FAERS Safety Report 7308796-6 (Version None)
Quarter: 2011Q1

REPORT INFORMATION
  Report Type: 
  Country: None (occurrence: None)
  Receive Date: 20110223
  Receipt Date: 20110215
  Transmission Date: 20110831
  Serious: Yes (Death, Hospitalization)
  Sender: FDA-Public Use
  Company Number: PHHY2011ML13233

PATIENT
  Sex: Male
  Weight: 70 kg

DRUGS (3)
  1. GLEEVEC [Suspect]
     Dosage: 200 MG, TID
     Dates: start: 20100812
  2. PERFALGAN [Concomitant]
     Dosage: 3 G, PER DAY
     Dates: start: 20110131, end: 20110203
  3. TRAMADOL HCL [Concomitant]
     Dosage: 100 MG, PER DAY

REACTIONS (8)
  - DEATH [None]
  - HEPATIC FAILURE [None]
  - DYSPNOEA [None]
  - ASCITES [None]
  - PYREXIA [None]
  - ABDOMINAL DISTENSION [None]
  - SPLENOMEGALY [None]
  - DIZZINESS [None]
